FAERS Safety Report 4484932-4 (Version None)
Quarter: 2004Q3

REPORT INFORMATION
  Report Type: 
  Country: None (occurrence: None)
  Receive Date: 20040921
  Receipt Date: 20030729
  Transmission Date: 20050211
  Serious: Yes (Hospitalization)
  Sender: FDA-Public Use
  Company Number: 163-20785-03080116 (0)

PATIENT
  Age: 70 Year
  Sex: Female

DRUGS (3)
  1. THALOMID [Suspect]
     Indication: APHTHOUS STOMATITIS
     Dosage: 100 MG, QD, ORAL; SEE IMAGE
     Route: 048
     Dates: end: 20030201
  2. THALOMID [Suspect]
     Indication: APHTHOUS STOMATITIS
     Dosage: 100 MG, QD, ORAL; SEE IMAGE
     Route: 048
     Dates: start: 20020501
  3. THALOMID [Suspect]
     Indication: APHTHOUS STOMATITIS
     Dosage: 100 MG, QD, ORAL; SEE IMAGE
     Route: 048
     Dates: start: 20030701

REACTIONS (3)
  - KNEE ARTHROPLASTY [None]
  - NEUROPATHY PERIPHERAL [None]
  - PNEUMONIA [None]
